FAERS Safety Report 26132315 (Version 1)
Quarter: 2025Q4

REPORT INFORMATION
  Report Type: Spontaneous
  Country: US (occurrence: US)
  Receive Date: 20251208
  Receipt Date: 20251208
  Transmission Date: 20260118
  Serious: Yes (Other)
  Sender: TEVA
  Company Number: US-TEVA-VS-3399346

PATIENT
  Age: 77 Year
  Sex: Female

DRUGS (1)
  1. TRAZODONE HYDROCHLORIDE [Suspect]
     Active Substance: TRAZODONE HYDROCHLORIDE
     Indication: Insomnia
     Dosage: TAKE 1- 2 TABLETS NIGHTLY, TEVA
     Route: 048
     Dates: start: 20251025

REACTIONS (6)
  - Deep vein thrombosis [Recovered/Resolved]
  - Product use in unapproved indication [Unknown]
  - Near death experience [Unknown]
  - Product prescribing error [Unknown]
  - Agitation [Unknown]
  - Oedema [Recovering/Resolving]

NARRATIVE: CASE EVENT DATE: 20250101
